FAERS Safety Report 8505549-8 (Version None)
Quarter: 2012Q3

REPORT INFORMATION
  Report Type: 
  Country: None (occurrence: None)
  Receive Date: 20120712
  Receipt Date: 20120703
  Transmission Date: 20120928
  Serious: Yes (Hospitalization, Other)
  Sender: FDA-Public Use
  Company Number: US-ELI_LILLY_AND_COMPANY-US201207002690

PATIENT
  Sex: Female

DRUGS (8)
  1. FORTEO [Suspect]
     Indication: OSTEOPOROSIS
     Dosage: 20 UG, QD
  2. ASPIRIN [Concomitant]
  3. TRAZODONE HYDROCHLORIDE [Concomitant]
  4. MUSCLE RELAXANTS [Concomitant]
  5. HYDROCODONE BITARTRATE [Concomitant]
  6. AMBIEN [Concomitant]
     Dosage: UNK, PRN
  7. OXYCODONE HCL [Concomitant]
  8. CALCIUM D                          /00944201/ [Concomitant]

REACTIONS (6)
  - PAIN [None]
  - IMPAIRED HEALING [None]
  - HIP FRACTURE [None]
  - BACK PAIN [None]
  - STRESS [None]
  - HIP ARTHROPLASTY [None]
